FAERS Safety Report 11859805 (Version 1)
Quarter: 2015Q4

REPORT INFORMATION
  Report Type: Report from Study
  Country: NL (occurrence: NL)
  Receive Date: 20151222
  Receipt Date: 20151222
  Transmission Date: 20160305
  Serious: Yes (Hospitalization, Other)
  Sender: FDA-Public Use
  Company Number: NL-AMGEN-NLDSL2015134989

PATIENT
  Age: 74 Year
  Sex: Male

DRUGS (14)
  1. DEXAMETHASONE. [Concomitant]
     Active Substance: DEXAMETHASONE
     Dosage: 4 MG, BID
     Dates: start: 20151202
  2. DICLOFENAC [Concomitant]
     Active Substance: DICLOFENAC
     Dosage: UNK
     Dates: start: 20151129
  3. MISOPROSTOL. [Concomitant]
     Active Substance: MISOPROSTOL
     Dosage: 200 MUG, QD
  4. SALBUTAMOL [Concomitant]
     Active Substance: ALBUTEROL
     Dosage: 100 MUG, UNK
     Dates: start: 20151129
  5. COD LIVER OIL [Concomitant]
     Active Substance: COD LIVER OIL
     Dosage: UNK
     Dates: start: 20151213
  6. OMEPRAZOL                          /00661201/ [Concomitant]
     Active Substance: OMEPRAZOLE
     Dosage: 40 MG, QD
     Dates: start: 20151128
  7. MICONAZOLE. [Concomitant]
     Active Substance: MICONAZOLE
     Dosage: 50 MG, BID
     Dates: start: 20151129
  8. CALCIUMCARBONAAT [Concomitant]
     Dosage: 500 MG, UNK
     Dates: start: 20151129
  9. METOCLOPRAMIDE. [Concomitant]
     Active Substance: METOCLOPRAMIDE
     Dosage: 10 MG, UNK
     Dates: start: 20151207
  10. GRANISETRON [Concomitant]
     Active Substance: GRANISETRON
     Dosage: 2 MG, QD
     Dates: start: 20151129
  11. MACROGOL [Concomitant]
     Active Substance: POLYETHYLENE GLYCOLS
     Dosage: UNK, QD
     Dates: start: 20151129, end: 20151209
  12. PARACETAMOL [Concomitant]
     Active Substance: ACETAMINOPHEN
     Dosage: 500 MG, TID
     Dates: start: 20151128
  13. XGEVA [Suspect]
     Active Substance: DENOSUMAB
     Indication: PRODUCT USED FOR UNKNOWN INDICATION
     Dosage: 120 MG, Q4WK
     Route: 058
     Dates: start: 20130923
  14. BAND AID [Concomitant]
     Active Substance: DEVICE
     Dosage: UNK
     Dates: start: 20151201

REACTIONS (19)
  - Anal abscess [Unknown]
  - Pneumonia [Unknown]
  - Haemoglobin abnormal [Unknown]
  - Metastases to bone [Unknown]
  - Back pain [Unknown]
  - Hypophosphataemia [Unknown]
  - Malaise [Unknown]
  - Numb chin syndrome [Unknown]
  - Prostate cancer metastatic [Unknown]
  - Decreased appetite [Unknown]
  - Hypocalcaemia [Unknown]
  - Diplopia [Unknown]
  - Pancytopenia [Unknown]
  - Surgery [Unknown]
  - Pulmonary embolism [Unknown]
  - Diarrhoea [Unknown]
  - Enteritis [Unknown]
  - Malignant neoplasm progression [Unknown]
  - Nausea [Unknown]

NARRATIVE: CASE EVENT DATE: 20131225
